FAERS Safety Report 10588364 (Version 1)
Quarter: 2014Q4

REPORT INFORMATION
  Report Type: Report from Study
  Country: AR (occurrence: AR)
  Receive Date: 20141117
  Receipt Date: 20141117
  Transmission Date: 20150529
  Serious: Yes (Other)
  Sender: FDA-Public Use
  Company Number: PHHY2014AR149631

PATIENT
  Sex: Female

DRUGS (1)
  1. DIOVAN [Suspect]
     Active Substance: VALSARTAN
     Indication: HYPERTENSION
     Dosage: 1 DF (160 MG), QD (DAILY)
     Route: 048
     Dates: start: 2011

REACTIONS (4)
  - Pneumonia [Unknown]
  - Hypertension [Unknown]
  - Anaemia [Unknown]
  - Incorrect dose administered [Unknown]
